FAERS Safety Report 5898161-0 (Version None)
Quarter: 2008Q3

REPORT INFORMATION
  Report Type: 
  Country: None (occurrence: None)
  Receive Date: 20080925
  Receipt Date: 20080919
  Transmission Date: 20090109
  Serious: Yes (Hospitalization, Disabling)
  Sender: FDA-Public Use
  Company Number: US-MERCK-0809USA03721

PATIENT
  Age: 50 Year
  Sex: Female

DRUGS (4)
  1. ZOCOR [Suspect]
     Route: 048
     Dates: start: 20080623, end: 20080701
  2. ZOCOR [Suspect]
     Route: 048
     Dates: start: 20080825
  3. WELLBUTRIN XL [Suspect]
     Indication: DEPRESSION
     Route: 048
     Dates: start: 20080401, end: 20080723
  4. WELLBUTRIN XL [Suspect]
     Route: 048
     Dates: start: 20080830, end: 20080831

REACTIONS (1)
  - PSYCHOTIC DISORDER [None]
